FAERS Safety Report 19264239 (Version 1)
Quarter: 2021Q2

REPORT INFORMATION
  Report Type: Spontaneous
  Country: US (occurrence: US)
  Receive Date: 20210516
  Receipt Date: 20210516
  Transmission Date: 20210717
  Serious: No
  Sender: FDA-Public Use
  Company Number: None

PATIENT
  Age: 73 Year
  Sex: Male
  Weight: 153.45 kg

DRUGS (34)
  1. TYLENOL [Concomitant]
     Active Substance: ACETAMINOPHEN
  2. ASPIRIN. [Concomitant]
     Active Substance: ASPIRIN
  3. FUROSEMIDE. [Concomitant]
     Active Substance: FUROSEMIDE
  4. VITAMIN D3 [Concomitant]
     Active Substance: CHOLECALCIFEROL
  5. FLUTICASONE. [Concomitant]
     Active Substance: FLUTICASONE
  6. FLUTICASONE. [Concomitant]
     Active Substance: FLUTICASONE
  7. LOTRISONE [Concomitant]
     Active Substance: BETAMETHASONE DIPROPIONATE\CLOTRIMAZOLE
  8. VIBERZI [Concomitant]
     Active Substance: ELUXADOLINE
  9. SYMBICORT [Concomitant]
     Active Substance: BUDESONIDE\FORMOTEROL FUMARATE DIHYDRATE
  10. JARDIANCE [Concomitant]
     Active Substance: EMPAGLIFLOZIN
  11. ROSUVASTATIN. [Concomitant]
     Active Substance: ROSUVASTATIN
  12. ALBUTEROL SULFATE. [Concomitant]
     Active Substance: ALBUTEROL SULFATE
  13. ZYRTEC [Concomitant]
     Active Substance: CETIRIZINE HYDROCHLORIDE
  14. MULTI?VITAMIN [Concomitant]
     Active Substance: .ALPHA.-TOCOPHEROL ACETATE, DL-\ASCORBIC ACID\CYANOCOBALAMIN\FLUORIDE ION\FOLIC ACID\NIACIN\PYRIDOXINE\RIBOFLAVIN\THIAMINE\VITAMIN A\VITAMIN D
  15. TRULICITY [Suspect]
     Active Substance: DULAGLUTIDE
     Indication: TYPE 2 DIABETES MELLITUS
     Dosage: ?          QUANTITY:1 INJECTION(S);OTHER FREQUENCY:ONCE A WEEK;?
     Route: 058
  16. SPIRIVA [Concomitant]
     Active Substance: TIOTROPIUM BROMIDE MONOHYDRATE
  17. HYDROXYZINE HCL [Concomitant]
     Active Substance: HYDROXYZINE HYDROCHLORIDE
  18. TAMSULOSIN [Concomitant]
     Active Substance: TAMSULOSIN
  19. OXYGEN. [Concomitant]
     Active Substance: OXYGEN
  20. BETAMETHASONE CLOTRIMAZOLE [Concomitant]
     Active Substance: BETAMETHASONE DIPROPIONATE\CLOTRIMAZOLE
  21. BIPAP [Concomitant]
     Active Substance: DEVICE
  22. ZINC. [Concomitant]
     Active Substance: ZINC
  23. POTASSIUM CL [Concomitant]
     Active Substance: POTASSIUM CHLORIDE
  24. CYCLOBENZAPRINE. [Concomitant]
     Active Substance: CYCLOBENZAPRINE
  25. GARLIC EXTRACT [Concomitant]
     Active Substance: GARLIC
  26. DIETARY ENZYMES [Concomitant]
  27. LISINOPRIL. [Concomitant]
     Active Substance: LISINOPRIL
  28. PREGABALIN. [Concomitant]
     Active Substance: PREGABALIN
  29. CHROMIUM [Concomitant]
     Active Substance: CHROMIC CHLORIDE\CHROMIUM
  30. TUMERIC [Concomitant]
     Active Substance: HERBALS\TURMERIC
  31. B2 [Concomitant]
  32. BLACK ELDERBERRY [Concomitant]
  33. VITAMIN B12 [Concomitant]
     Active Substance: CYANOCOBALAMIN
  34. C [Concomitant]

REACTIONS (2)
  - Injection site bruising [None]
  - Arthritis [None]

NARRATIVE: CASE EVENT DATE: 20210511
